FAERS Safety Report 4521106-2 (Version None)
Quarter: 2004Q4

REPORT INFORMATION
  Report Type: 
  Country: None (occurrence: None)
  Receive Date: 20041206
  Receipt Date: 20040916
  Transmission Date: 20050328
  Serious: Yes (Other)
  Sender: FDA-Public Use
  Company Number: M2004-1802

PATIENT
  Age: 66 Year
  Sex: Female

DRUGS (3)
  1. FLUVOXAMINE UNK, UNKNOWN MANUFACTURER [Suspect]
     Indication: TENSION HEADACHE
     Dosage: 50MG DAILY
  2. TIMOLOL MALEATE [Concomitant]
  3. LORAZEPAM [Concomitant]

REACTIONS (1)
  - ANGLE CLOSURE GLAUCOMA [None]
